FAERS Safety Report 7793266-1 (Version None)
Quarter: 2011Q3

REPORT INFORMATION
  Report Type: 
  Country: None (occurrence: None)
  Receive Date: 20110930
  Receipt Date: 20110930
  Transmission Date: 20111222
  Serious: Yes (Other)
  Sender: FDA-Public Use
  Company Number: None

PATIENT
  Sex: Female

DRUGS (1)
  1. RAMIPRIL [Suspect]
     Indication: HYPERTENSION
     Dosage: 10 MG QD PO
     Route: 048
     Dates: start: 20110606, end: 20110813

REACTIONS (11)
  - DIZZINESS [None]
  - OEDEMA PERIPHERAL [None]
  - RASH [None]
  - ASTHENIA [None]
  - OEDEMA [None]
  - MUSCULAR WEAKNESS [None]
  - NAUSEA [None]
  - PAIN IN EXTREMITY [None]
  - HYPOAESTHESIA [None]
  - TREMOR [None]
  - HEADACHE [None]
